FAERS Safety Report 8545982-1 (Version None)
Quarter: 2012Q3

REPORT INFORMATION
  Report Type: 
  Country: None (occurrence: None)
  Receive Date: 20120727
  Receipt Date: 20111128
  Transmission Date: 20120928
  Serious: No
  Sender: FDA-Public Use
  Company Number: US-ASTRAZENECA-2011SE72447

PATIENT
  Age: 49 Year
  Sex: Female

DRUGS (4)
  1. COMPAZINE [Suspect]
  2. SEROQUEL XR [Suspect]
     Route: 048
  3. SEROQUEL XR [Suspect]
     Route: 048
  4. LITHIUM CARBONATE [Suspect]

REACTIONS (4)
  - DRUG INTOLERANCE [None]
  - ULCER [None]
  - MALAISE [None]
  - FEELING ABNORMAL [None]
